FAERS Safety Report 8949670 (Version 1)
Quarter: 2012Q4

REPORT INFORMATION
  Report Type: 
  Country: BR (occurrence: BR)
  Receive Date: 20121206
  Receipt Date: 20121206
  Transmission Date: 20130627
  Serious: Yes (Other)
  Sender: FDA-Public Use
  Company Number: BR-PFIZER INC-2012307409

PATIENT
  Age: 68 Year
  Sex: Female
  Weight: 67 kg

DRUGS (1)
  1. LYRICA [Suspect]
     Indication: BACK PAIN
     Dosage: 75 mg, 1x/day (one capsule daily)
     Route: 048
     Dates: start: 20121201

REACTIONS (5)
  - Movement disorder [Unknown]
  - Amnesia [Unknown]
  - Apathy [Unknown]
  - Tremor [Unknown]
  - Dizziness [Unknown]
